FAERS Safety Report 9903941 (Version 2)
Quarter: 2014Q1

REPORT INFORMATION
  Report Type: Spontaneous
  Country: US (occurrence: US)
  Receive Date: 20140218
  Receipt Date: 20140303
  Transmission Date: 20141002
  Serious: No
  Sender: FDA-Public Use
  Company Number: US-BIOGENIDEC-2014BI009621

PATIENT
  Age: 67 Year
  Sex: Female

DRUGS (8)
  1. TECFIDERA [Suspect]
     Indication: MULTIPLE SCLEROSIS
     Route: 048
     Dates: start: 20131216
  2. TECFIDERA [Suspect]
     Indication: MULTIPLE SCLEROSIS
     Route: 048
     Dates: start: 20140115, end: 20140121
  3. TECFIDERA [Suspect]
     Indication: MULTIPLE SCLEROSIS
     Route: 048
     Dates: start: 20140122
  4. BACLOFEN [Concomitant]
  5. CALCIUM-MAGNESIUM-ZINC [Concomitant]
  6. FOSAMAX [Concomitant]
  7. VITAMIN B COMPLEX [Concomitant]
  8. VITAMIN D [Concomitant]

REACTIONS (5)
  - Ear discomfort [Recovered/Resolved]
  - Local swelling [Not Recovered/Not Resolved]
  - Flushing [Not Recovered/Not Resolved]
  - Diarrhoea [Unknown]
  - Abdominal pain [Unknown]
